FAERS Safety Report 24679470 (Version 1)
Quarter: 2024Q4

REPORT INFORMATION
  Report Type: Spontaneous
  Country: SI (occurrence: SI)
  Receive Date: 20241129
  Receipt Date: 20241129
  Transmission Date: 20250115
  Serious: Yes (Other)
  Sender: BAYER HEALTHCARE PHARMACEUTICALS INC.
  Company Number: SI-BAYER-2024A165919

PATIENT
  Age: 63 Year
  Sex: Male

DRUGS (8)
  1. FINERENONE [Suspect]
     Active Substance: FINERENONE
     Indication: Proteinuria
     Dosage: 10 MG
  2. FINERENONE [Suspect]
     Active Substance: FINERENONE
     Indication: Albuminuria
     Dosage: 20 MG
  3. ENALAPRIL [Concomitant]
     Active Substance: ENALAPRIL
  4. LERCANIDIPINE [Concomitant]
     Active Substance: LERCANIDIPINE
  5. VITAMIN D3 [Concomitant]
     Active Substance: CHOLECALCIFEROL
  6. BISOPROLOL [Concomitant]
     Active Substance: BISOPROLOL
  7. ASPIRIN [Concomitant]
     Active Substance: ASPIRIN
  8. ATORVASTATIN [Concomitant]
     Active Substance: ATORVASTATIN

REACTIONS (2)
  - Polycythaemia [None]
  - Obstructive sleep apnoea syndrome [None]
